FAERS Safety Report 10028588 (Version 2)
Quarter: 2014Q2

REPORT INFORMATION
  Report Type: Spontaneous
  Country: US (occurrence: US)
  Receive Date: 20140321
  Receipt Date: 20140520
  Transmission Date: 20141212
  Serious: Yes (Life-Threatening, Hospitalization, Disabling, Other)
  Sender: FDA-Public Use
  Company Number: US-GLAXOSMITHKLINE-A1064886A

PATIENT
  Age: 35 Year
  Sex: Female
  Weight: 95.5 kg

DRUGS (2)
  1. IMITREX [Suspect]
     Indication: HEADACHE
     Route: 042
     Dates: start: 201301, end: 201301
  2. LOVENOX [Concomitant]
     Indication: THROMBOSIS

REACTIONS (11)
  - Convulsion [Unknown]
  - Blood pressure decreased [Not Recovered/Not Resolved]
  - Headache [Unknown]
  - Trismus [Unknown]
  - Muscle tightness [Unknown]
  - Diplopia [Unknown]
  - Lung disorder [Not Recovered/Not Resolved]
  - Dyspnoea [Not Recovered/Not Resolved]
  - Cough [Not Recovered/Not Resolved]
  - Influenza like illness [Not Recovered/Not Resolved]
  - Incorrect route of drug administration [Unknown]
